FAERS Safety Report 14359507 (Version 1)
Quarter: 2018Q1

REPORT INFORMATION
  Report Type: Spontaneous
  Country: US (occurrence: US)
  Receive Date: 20180105
  Receipt Date: 20180105
  Transmission Date: 20180509
  Serious: No
  Sender: FDA-Public Use
  Company Number: -SAAVPROD-BI2016BI072022

PATIENT
  Sex: Female

DRUGS (3)
  1. RANITIDINE HYDROCHLORIDE. [Suspect]
     Active Substance: RANITIDINE HYDROCHLORIDE
     Indication: GASTROOESOPHAGEAL REFLUX DISEASE
     Route: 048
     Dates: start: 20161025
  2. ENALAPRIL MALEATE. [Concomitant]
     Active Substance: ENALAPRIL MALEATE
     Indication: CONGESTIVE CARDIOMYOPATHY
     Route: 048
     Dates: start: 201604
  3. CARVEDILOL. [Concomitant]
     Active Substance: CARVEDILOL
     Indication: CONGESTIVE CARDIOMYOPATHY
     Route: 048
     Dates: start: 201604

REACTIONS (3)
  - Nausea [Recovered/Resolved]
  - Oral pain [Recovered/Resolved]
  - Throat irritation [Recovered/Resolved]

NARRATIVE: CASE EVENT DATE: 20161025
